FAERS Safety Report 11087875 (Version 2)
Quarter: 2015Q2

REPORT INFORMATION
  Report Type: Report from Study
  Country: PT (occurrence: PT)
  Receive Date: 20150504
  Receipt Date: 20150522
  Transmission Date: 20150821
  Serious: Yes (Other)
  Sender: FDA-Public Use
  Company Number: PHHY2013PT038663

PATIENT
  Age: 48 Year
  Sex: Female

DRUGS (6)
  1. EXTAVIA [Suspect]
     Active Substance: INTERFERON BETA-1B
     Indication: MULTIPLE SCLEROSIS
     Dosage: 1 ML, QOD
     Route: 058
     Dates: start: 20121015
  2. BRUFEN//IBUPROFEN [Concomitant]
     Active Substance: IBUPROFEN
     Indication: PRODUCT USED FOR UNKNOWN INDICATION
     Route: 048
  3. LYRICA [Concomitant]
     Active Substance: PREGABALIN
     Indication: PRODUCT USED FOR UNKNOWN INDICATION
     Route: 048
  4. GABAPENTINA [Concomitant]
     Active Substance: GABAPENTIN
     Indication: PRODUCT USED FOR UNKNOWN INDICATION
     Route: 048
  5. EXTAVIA [Suspect]
     Active Substance: INTERFERON BETA-1B
     Dosage: UNK, QOD
     Route: 058
     Dates: start: 20140620
  6. EXTAVIA [Suspect]
     Active Substance: INTERFERON BETA-1B
     Dosage: UNK
     Route: 058
     Dates: start: 20150511

REACTIONS (10)
  - Confusional state [Not Recovered/Not Resolved]
  - Sensory disturbance [Not Recovered/Not Resolved]
  - Drug administration error [Unknown]
  - General physical health deterioration [Not Recovered/Not Resolved]
  - Amnesia [Unknown]
  - Disorientation [Not Recovered/Not Resolved]
  - Fatigue [Recovering/Resolving]
  - Hypoaesthesia [Not Recovered/Not Resolved]
  - Psychomotor hyperactivity [Unknown]
  - Muscular weakness [Not Recovered/Not Resolved]

NARRATIVE: CASE EVENT DATE: 201212
